FAERS Safety Report 21243847 (Version 1)
Quarter: 2022Q3

REPORT INFORMATION
  Report Type: Spontaneous
  Country: US (occurrence: None)
  Receive Date: 20220822
  Receipt Date: 20220822
  Transmission Date: 20221027
  Serious: Yes (Other)
  Sender: FDA-Public Use
  Company Number: None

PATIENT
  Sex: Male

DRUGS (1)
  1. TASIGNA [Suspect]
     Active Substance: NILOTINIB
     Indication: Myeloid leukaemia
     Dosage: TAKE 2 CAPSULES (300 MG) BY MOUTH TWICE DAILY AT 11 AM AND 11 PM?
     Route: 048
     Dates: start: 20201201

REACTIONS (1)
  - Eye operation [None]
